FAERS Safety Report 17123208 (Version 2)
Quarter: 2019Q4

REPORT INFORMATION
  Report Type: Spontaneous
  Country: RU (occurrence: RU)
  Receive Date: 20191206
  Receipt Date: 20191219
  Transmission Date: 20200122
  Serious: Yes (Other)
  Sender: FDA-Public Use
  Company Number: RU-US-PROVELL PHARMACEUTICALS LLC-9124926

PATIENT
  Age: 67 Year
  Sex: Female

DRUGS (8)
  1. EUTHYROX [Suspect]
     Active Substance: LEVOTHYROXINE SODIUM
     Dosage: DOSE INCREASED
     Route: 048
     Dates: start: 201812, end: 201909
  2. AQUADETRIM VITAMIN D3 [Concomitant]
     Indication: VITAMIN D DECREASED
     Dates: start: 201909
  3. EUTHYROX [Suspect]
     Active Substance: LEVOTHYROXINE SODIUM
     Dosage: DOSE REDUCED
     Route: 048
     Dates: start: 20191023
  4. ATORIS [Concomitant]
     Active Substance: ATORVASTATIN CALCIUM
     Indication: NEURITIC PLAQUES
     Dates: end: 201912
  5. SORTIS [Concomitant]
     Active Substance: ATORVASTATIN
     Indication: NEURITIC PLAQUES
     Dates: start: 2019
  6. EUTHYROX [Suspect]
     Active Substance: LEVOTHYROXINE SODIUM
     Dosage: DOSE INCREASED
     Route: 048
     Dates: start: 201909, end: 20191022
  7. LISINOPRIL. [Concomitant]
     Active Substance: LISINOPRIL
     Indication: BLOOD PRESSURE ABNORMAL
  8. EUTHYROX [Suspect]
     Active Substance: LEVOTHYROXINE SODIUM
     Indication: THYROID DISORDER
     Dosage: DATE OF MANUFACTURE: APR 2019.
     Dates: start: 2009, end: 201812

REACTIONS (15)
  - Tri-iodothyronine decreased [Not Recovered/Not Resolved]
  - Malaise [Recovering/Resolving]
  - Suspected counterfeit product [Unknown]
  - Blood thyroid stimulating hormone increased [Not Recovered/Not Resolved]
  - Blood thyroid stimulating hormone decreased [Unknown]
  - Thyroid mass [Recovered/Resolved]
  - Feeling abnormal [Recovering/Resolving]
  - Impatience [Recovering/Resolving]
  - Weight increased [Not Recovered/Not Resolved]
  - Weight decreased [Recovered/Resolved]
  - Blood creatine phosphokinase increased [Recovering/Resolving]
  - Asthenia [Recovering/Resolving]
  - Cardiac disorder [Recovered/Resolved]
  - General physical health deterioration [Not Recovered/Not Resolved]
  - Palpitations [Recovered/Resolved]

NARRATIVE: CASE EVENT DATE: 2013
